FAERS Safety Report 19715394 (Version 1)
Quarter: 2021Q3

REPORT INFORMATION
  Report Type: Spontaneous
  Country: US (occurrence: US)
  Receive Date: 20210818
  Receipt Date: 20210818
  Transmission Date: 20211014
  Serious: No
  Sender: FDA-Public Use
  Company Number: US-JNJFOC-20210817615

PATIENT
  Sex: Male

DRUGS (1)
  1. INVEGA [Suspect]
     Active Substance: PALIPERIDONE
     Indication: SCHIZOPHRENIA
     Route: 048

REACTIONS (6)
  - Asthenia [Recovering/Resolving]
  - Gynaecomastia [Recovering/Resolving]
  - Confusional state [Recovering/Resolving]
  - Tremor [Recovering/Resolving]
  - Nervousness [Recovering/Resolving]
  - Disorientation [Recovering/Resolving]
